FAERS Safety Report 13815326 (Version 1)
Quarter: 2017Q3

REPORT INFORMATION
  Report Type: Spontaneous
  Country: US (occurrence: US)
  Receive Date: 20170729
  Receipt Date: 20170729
  Transmission Date: 20171127
  Serious: Yes (Other)
  Sender: FDA-Public Use
  Company Number: None

PATIENT
  Sex: Female
  Weight: 18 kg

DRUGS (3)
  1. NEOSPORIN PAIN ITCH SCAR [Suspect]
     Active Substance: BACITRACIN ZINC\NEOMYCIN SULFATE\POLYMYXIN B SULFATE\PRAMOXINE HYDROCHLORIDE
     Indication: ACCIDENTAL EXPOSURE TO PRODUCT BY CHILD
     Route: 061
  2. EPIPEN JR [Concomitant]
     Active Substance: EPINEPHRINE
  3. FLINTSTONE MULTIVITAMIN FOR TODDLER WITH IRON [Concomitant]

REACTIONS (3)
  - Lip haemorrhage [None]
  - Lip exfoliation [None]
  - Lip pain [None]

NARRATIVE: CASE EVENT DATE: 20170729
